FAERS Safety Report 8368890-8 (Version None)
Quarter: 2012Q2

REPORT INFORMATION
  Report Type: 
  Country: None (occurrence: None)
  Receive Date: 20120516
  Receipt Date: 20120501
  Transmission Date: 20120825
  Serious: Yes (Hospitalization, Other)
  Sender: FDA-Public Use
  Company Number: JP-2012-10462

PATIENT
  Age: 73 Year
  Sex: Male
  Weight: 66 kg

DRUGS (10)
  1. OLMESARTAN MEDOXOMIL [Concomitant]
  2. ATELEC (CILNIDIPINE) [Concomitant]
  3. CALBLOCK (AZELNIDIPINE) [Concomitant]
  4. ARGATROBAN [Suspect]
     Indication: CEREBRAL INFARCTION
     Dosage: 10 MG MILLIGRAM(S), DAILY DOSE, INTRACAVERNOUS
     Route: 017
     Dates: start: 20110303
  5. LIPITOR [Concomitant]
  6. PLETAL [Suspect]
     Indication: CEREBRAL INFARCTION
     Dosage: 100 MG MILLIGRAM(S), BID, ORAL
     Route: 048
     Dates: start: 20110303, end: 20110602
  7. FUROSEMIDE [Concomitant]
  8. LANSOPRAZOLE [Concomitant]
  9. ZETIA [Concomitant]
  10. ASPIRIN [Concomitant]

REACTIONS (6)
  - GENERALISED OEDEMA [None]
  - WEIGHT INCREASED [None]
  - PAIN [None]
  - ANAEMIA [None]
  - RENAL FAILURE CHRONIC [None]
  - SCROTAL SWELLING [None]
